FAERS Safety Report 7055915-5 (Version None)
Quarter: 2010Q4

REPORT INFORMATION
  Report Type: 
  Country: None (occurrence: None)
  Receive Date: 20101021
  Receipt Date: 20101015
  Transmission Date: 20110411
  Serious: Yes (Hospitalization)
  Sender: FDA-Public Use
  Company Number: A0763995A

PATIENT
  Age: 62 Year
  Sex: Male
  Weight: 104.5 kg

DRUGS (7)
  1. AVANDIA [Suspect]
     Dosage: 8MG UNKNOWN
     Route: 048
     Dates: start: 20030501, end: 20070220
  2. METFORMIN [Concomitant]
  3. GLYBURIDE [Concomitant]
  4. COREG [Concomitant]
     Dates: start: 20050101
  5. NITROGLYCERIN [Concomitant]
  6. NITRO-DUR [Concomitant]
  7. ISOSORBID [Concomitant]

REACTIONS (1)
  - CARDIAC FAILURE CONGESTIVE [None]
